FAERS Safety Report 5124690-3 (Version None)
Quarter: 2006Q4

REPORT INFORMATION
  Report Type: 
  Country: None (occurrence: None)
  Receive Date: 20061006
  Receipt Date: 20061006
  Transmission Date: 20070319
  Serious: No
  Sender: FDA-Public Use
  Company Number: None

PATIENT
  Sex: Female
  Weight: 46 kg

DRUGS (3)
  1. CISPLATIN [Suspect]
     Dosage: 70.6 MG      CISPLATIN 50 MG/M2
  2. DOXORUBICIN HYDROCHLORIDE [Suspect]
     Dosage: 63.5 MG    ADM 45 MG/M2
  3. TAXOL [Suspect]
     Dosage: 225.8 MG       PACLITAXEL 160MG/M2

REACTIONS (1)
  - NEUTROPENIA [None]
